FAERS Safety Report 7365720-8 (Version None)
Quarter: 2011Q1

REPORT INFORMATION
  Report Type: 
  Country: None (occurrence: None)
  Receive Date: 20110316
  Receipt Date: 20110316
  Transmission Date: 20110831
  Serious: Yes (Life-Threatening)
  Sender: FDA-Public Use
  Company Number: None

PATIENT
  Age: 81 Year
  Sex: Male
  Weight: 88.6 kg

DRUGS (9)
  1. IV FLUIDS [Concomitant]
  2. DILAUDID [Suspect]
     Indication: NEPHROLITHIASIS
     Dosage: 2 MG Q2-3 H PRN IV BOLUS
     Route: 040
     Dates: start: 20110102, end: 20110102
  3. DILAUDID [Suspect]
     Indication: FLANK PAIN
     Dosage: 2 MG Q2-3 H PRN IV BOLUS
     Route: 040
     Dates: start: 20110102, end: 20110102
  4. AMLODIPINE [Suspect]
  5. TAMSULOSIN HCL [Concomitant]
  6. CIPRO [Concomitant]
  7. ACETAMINOPHEN [Concomitant]
  8. DOXASOCIN [Concomitant]
  9. ONDANSETRON [Concomitant]

REACTIONS (8)
  - RESPIRATORY ACIDOSIS [None]
  - HYPOTONIA [None]
  - MIOSIS [None]
  - UNRESPONSIVE TO STIMULI [None]
  - RESPIRATORY ARREST [None]
  - DEPRESSED LEVEL OF CONSCIOUSNESS [None]
  - ENDOTRACHEAL INTUBATION COMPLICATION [None]
  - SOMNOLENCE [None]
